FAERS Safety Report 9013254 (Version 3)
Quarter: 2014Q3

REPORT INFORMATION
  Report Type: Spontaneous
  Country: US (occurrence: US)
  Receive Date: 20130114
  Receipt Date: 20140707
  Transmission Date: 20150326
  Serious: Yes (Hospitalization, Disabling, Other)
  Sender: FDA-Public Use
  Company Number: US-009507513-1301USA005168

PATIENT
  Sex: Female
  Weight: 97.51 kg

DRUGS (2)
  1. NUVARING [Suspect]
     Active Substance: ETHINYL ESTRADIOL\ETONOGESTREL
     Indication: DYSMENORRHOEA
     Dosage: UNK
     Route: 067
     Dates: start: 20100524, end: 20100604
  2. NUVARING [Suspect]
     Active Substance: ETHINYL ESTRADIOL\ETONOGESTREL
     Indication: MENORRHAGIA

REACTIONS (10)
  - Pulmonary embolism [Unknown]
  - Uterine leiomyoma embolisation [Unknown]
  - Vena cava filter insertion [Unknown]
  - Coagulopathy [Unknown]
  - Off label use [Recovered/Resolved]
  - Transfusion [Unknown]
  - Iron deficiency anaemia [Unknown]
  - Subclavian vein thrombosis [Unknown]
  - Lung infiltration [Unknown]
  - Microcytosis [Unknown]

NARRATIVE: CASE EVENT DATE: 20100524
